FAERS Safety Report 14859235 (Version 2)
Quarter: 2018Q3

REPORT INFORMATION
  Report Type: Report from Study
  Country: US (occurrence: US)
  Receive Date: 20180508
  Receipt Date: 20180706
  Transmission Date: 20181010
  Serious: Yes (Death, Other)
  Sender: FDA-Public Use
  Company Number: US-CIPLA (EU) LIMITED-2018US17223

PATIENT

DRUGS (3)
  1. PEMBROLIZUMAB. [Suspect]
     Active Substance: PEMBROLIZUMAB
     Indication: ADENOCARCINOMA PANCREAS
     Dosage: 2 MG/KG, OVER 30 MIN EVERY 21 DAYS
  2. GEMCITABINE [Suspect]
     Active Substance: GEMCITABINE\GEMCITABINE HYDROCHLORIDE
     Indication: ADENOCARCINOMA PANCREAS
     Dosage: 1000 MG/M2, ON DAYS 1 AND 8 EVERY 21 DAYS
  3. PACLITAXEL. [Suspect]
     Active Substance: PACLITAXEL
     Indication: ADENOCARCINOMA PANCREAS
     Dosage: 125 MG/M2, ON DAYS 1 AND 8 EVERY 21 DAYS

REACTIONS (12)
  - Hypoalbuminaemia [Unknown]
  - Nausea [Unknown]
  - Oedema peripheral [Unknown]
  - Alanine aminotransferase increased [Unknown]
  - Hyponatraemia [Unknown]
  - Thrombocytopenia [Unknown]
  - Death [Fatal]
  - Thrombosis [Unknown]
  - Dehydration [Unknown]
  - Fatigue [Unknown]
  - Vomiting [Unknown]
  - Anaemia [Unknown]
